FAERS Safety Report 16771386 (Version 4)
Quarter: 2020Q4

REPORT INFORMATION
  Report Type: Spontaneous
  Country: US (occurrence: US)
  Receive Date: 20190904
  Receipt Date: 20201222
  Transmission Date: 20210113
  Serious: No
  Sender: FDA-Public Use
  Company Number: US-PFIZER INC-2019375078

PATIENT
  Age: 67 Year
  Sex: Female

DRUGS (1)
  1. LYRICA [Suspect]
     Active Substance: PREGABALIN
     Dosage: UNK

REACTIONS (6)
  - Homicidal ideation [Unknown]
  - Emotional distress [Unknown]
  - Hypoaesthesia [Unknown]
  - Limb discomfort [Unknown]
  - Hypersensitivity [Unknown]
  - Pain in extremity [Unknown]
